FAERS Safety Report 15974143 (Version 1)
Quarter: 2019Q1

REPORT INFORMATION
  Report Type: Spontaneous
  Country: FR (occurrence: FR)
  Receive Date: 20190218
  Receipt Date: 20190218
  Transmission Date: 20190418
  Serious: Yes (Other)
  Sender: FDA-Public Use
  Company Number: FR-SUN PHARMACEUTICAL INDUSTRIES LTD-2019RR-199288

PATIENT
  Age: 65 Year
  Sex: Female
  Weight: 64 kg

DRUGS (2)
  1. ARCOXIA [Suspect]
     Active Substance: ETORICOXIB
     Indication: PRODUCT USED FOR UNKNOWN INDICATION
     Dosage: 60 MILLIGRAM, DAILY
     Route: 048
     Dates: start: 20181226, end: 20190102
  2. PARACETAMOL [Suspect]
     Active Substance: ACETAMINOPHEN
     Indication: MYALGIA
     Dosage: 3 GRAM
     Route: 048
     Dates: start: 20181226, end: 20190102

REACTIONS (1)
  - Hepatocellular injury [Not Recovered/Not Resolved]

NARRATIVE: CASE EVENT DATE: 20181230
